FAERS Safety Report 18478279 (Version 26)
Quarter: 2022Q4

REPORT INFORMATION
  Report Type: Spontaneous
  Country: CA (occurrence: CA)
  Receive Date: 20201109
  Receipt Date: 20221124
  Transmission Date: 20230112
  Serious: Yes (Hospitalization, Other)
  Sender: FDA-Public Use
  Company Number: CA-CELLTRION INC.-2020CA030823

PATIENT

DRUGS (31)
  1. INFLECTRA [Suspect]
     Active Substance: INFLIXIMAB-DYYB
     Indication: Colitis ulcerative
     Dosage: UNK (FIRST 2 DOSES IN HOSPITAL)
     Route: 042
     Dates: start: 2020
  2. INFLECTRA [Suspect]
     Active Substance: INFLIXIMAB-DYYB
     Dosage: 400 MG AT 0, 1, 2 AND 6, THEN EVERY MONTH
     Route: 042
     Dates: start: 20201106
  3. INFLECTRA [Suspect]
     Active Substance: INFLIXIMAB-DYYB
     Dosage: 400 MG WITH INDUCTION 0, 2, 6 WEEKS THEN FOLLOWED BY MAINTENANCE EVERY 4 WEEKS
     Route: 042
     Dates: start: 20201106
  4. INFLECTRA [Suspect]
     Active Substance: INFLIXIMAB-DYYB
     Dosage: 400 MG AT 0, 1, 2 AND 6, THEN EVERY MONTH
     Route: 042
     Dates: start: 20201205
  5. INFLECTRA [Suspect]
     Active Substance: INFLIXIMAB-DYYB
     Dosage: 400 MG, MONTHLY
     Route: 042
     Dates: start: 20210105
  6. INFLECTRA [Suspect]
     Active Substance: INFLIXIMAB-DYYB
     Dosage: 400 MG, MONTHLY
     Route: 042
     Dates: start: 20210202
  7. INFLECTRA [Suspect]
     Active Substance: INFLIXIMAB-DYYB
     Dosage: 400 MG, MONTHLY
     Route: 042
     Dates: start: 20210303
  8. INFLECTRA [Suspect]
     Active Substance: INFLIXIMAB-DYYB
     Dosage: 400 MG, MONTHLY
     Route: 042
     Dates: start: 20210330
  9. INFLECTRA [Suspect]
     Active Substance: INFLIXIMAB-DYYB
     Dosage: 400 MG, MONTHLY
     Route: 042
     Dates: start: 20210429
  10. INFLECTRA [Suspect]
     Active Substance: INFLIXIMAB-DYYB
     Dosage: 400 MG, INDUCTION INCLUDES 0, 2, 6 WEEKS FOLLOWED BY MAINTENANCE DOSE EVERY 4 WEEKS.
     Route: 042
     Dates: start: 20210527
  11. INFLECTRA [Suspect]
     Active Substance: INFLIXIMAB-DYYB
     Dosage: 400 MG, INDUCTION INCLUDES 0, 2, 6 WEEKS FOLLOWED BY MAINTENANCE DOSE EVERY 4 WEEKS.
     Route: 042
     Dates: start: 20210624
  12. INFLECTRA [Suspect]
     Active Substance: INFLIXIMAB-DYYB
     Dosage: 400 MG, INDUCTION INCLUDES 0, 2, 6 WEEKS FOLLOWED BY MAINTENANCE DOSE EVERY 4 WEEKS.
     Route: 042
     Dates: start: 20210722
  13. INFLECTRA [Suspect]
     Active Substance: INFLIXIMAB-DYYB
     Dosage: 400 MG INDUCTION INCLUDES 0, 2, 6 WEEKS FOLLOWED BY MAINTENANCE DOSE EVERY 4 WEEKS.
     Route: 042
     Dates: start: 20211014
  14. INFLECTRA [Suspect]
     Active Substance: INFLIXIMAB-DYYB
     Dosage: 400 MG INDUCTION INCLUDES 0, 2, 6 WEEKS FOLLOWED BY MAINTENANCE DOSE EVERY 4 WEEKS.
     Route: 042
     Dates: start: 20211210
  15. INFLECTRA [Suspect]
     Active Substance: INFLIXIMAB-DYYB
     Dosage: 400 MG INDUCTION INCLUDES 0, 2, 6 WEEKS FOLLOWED BY MAINTENANCE DOSE EVERY 4 WEEKS.
     Route: 042
     Dates: start: 20220120
  16. INFLECTRA [Suspect]
     Active Substance: INFLIXIMAB-DYYB
     Dosage: 400 MG INDUCTION INCLUDES 0, 2, 6 WEEKS FOLLOWED BY MAINTENANCE DOSE EVERY 4 WEEKS.
     Route: 042
     Dates: start: 20220218
  17. INFLECTRA [Suspect]
     Active Substance: INFLIXIMAB-DYYB
     Dosage: 400 MG INDUCTION INCLUDES 0, 2, 6 WEEKS FOLLOWED BY MAINTENANCE DOSE EVERY 4 WEEKS.
     Route: 042
     Dates: start: 20220317
  18. INFLECTRA [Suspect]
     Active Substance: INFLIXIMAB-DYYB
     Dosage: 400 MG INDUCTION INCLUDES 0, 2, 6 WEEKS FOLLOWED BY MAINTENANCE DOSE EVERY 4 WEEKS.
     Route: 042
     Dates: start: 20220414
  19. INFLECTRA [Suspect]
     Active Substance: INFLIXIMAB-DYYB
     Dosage: 400 MG ,INDUCTION INCLUDES 0, 2, 6 WEEKS FOLLOWED BY MAINTENANCE DOSE EVERY 4 WEEKS.
     Route: 042
     Dates: start: 20220513
  20. INFLECTRA [Suspect]
     Active Substance: INFLIXIMAB-DYYB
     Dosage: 400 MG ,INDUCTION INCLUDES 0, 2, 6 WEEKS FOLLOWED BY MAINTENANCE DOSE EVERY 4 WEEKS.
     Route: 042
     Dates: start: 20220617
  21. INFLECTRA [Suspect]
     Active Substance: INFLIXIMAB-DYYB
     Dosage: 400 MG ,INDUCTION INCLUDES 0, 2, 6 WEEKS FOLLOWED BY MAINTENANCE DOSE EVERY 4 WEEKS.
     Route: 042
     Dates: start: 20220715
  22. INFLECTRA [Suspect]
     Active Substance: INFLIXIMAB-DYYB
     Dosage: 400 MG ,INDUCTION INCLUDES 0, 2, 6 WEEKS FOLLOWED BY MAINTENANCE DOSE EVERY 4 WEEKS.
     Route: 042
     Dates: start: 20220818
  23. INFLECTRA [Suspect]
     Active Substance: INFLIXIMAB-DYYB
     Dosage: 400 MG ,INDUCTION INCLUDES 0, 2, 6 WEEKS FOLLOWED BY MAINTENANCE DOSE EVERY 4 WEEKS.
     Route: 042
     Dates: start: 20220916
  24. INFLECTRA [Suspect]
     Active Substance: INFLIXIMAB-DYYB
     Dosage: 400 MG ,INDUCTION INCLUDES 0, 2, 6 WEEKS FOLLOWED BY MAINTENANCE DOSE EVERY 4 WEEKS
     Route: 042
     Dates: start: 20221014
  25. INFLECTRA [Suspect]
     Active Substance: INFLIXIMAB-DYYB
     Dosage: 400 MG ,INDUCTION INCLUDES 0, 2, 6 WEEKS FOLLOWED BY MAINTENANCE DOSE EVERY 4 WEEKS
     Route: 042
     Dates: start: 20221114
  26. METHOTREXATE [Concomitant]
     Active Substance: METHOTREXATE
     Dosage: 1 DF, WEEKLY, UNKNOWN DOSE
     Route: 065
     Dates: start: 202010
  27. MESALAMINE [Concomitant]
     Active Substance: MESALAMINE
     Dosage: UNK
     Route: 065
  28. PREDNISONE [Concomitant]
     Active Substance: PREDNISONE
     Dosage: 40 MG
     Route: 048
  29. PREDNISONE [Concomitant]
     Active Substance: PREDNISONE
     Dosage: 40 MG, TAPER 5 MG WEEKLY
     Route: 048
     Dates: start: 202010
  30. PREDNISONE [Concomitant]
     Active Substance: PREDNISONE
     Dosage: 40-60 MG , DAILY FOR A MINIMUM OF 14 DAYS
     Route: 048
  31. PREDNISONE [Concomitant]
     Active Substance: PREDNISONE
     Dosage: 40 MG, WEEKLY, TAPERING DOSE
     Route: 048
     Dates: start: 202010

REACTIONS (23)
  - Clostridium difficile infection [Unknown]
  - Weight increased [Unknown]
  - Condition aggravated [Recovered/Resolved]
  - Weight increased [Unknown]
  - Fatigue [Unknown]
  - Weight decreased [Recovered/Resolved]
  - Blood pressure increased [Unknown]
  - Body temperature increased [Unknown]
  - Nasopharyngitis [Not Recovered/Not Resolved]
  - Malaise [Recovering/Resolving]
  - Cough [Recovered/Resolved]
  - Pyrexia [Recovered/Resolved]
  - Chills [Recovered/Resolved]
  - Oropharyngeal pain [Not Recovered/Not Resolved]
  - Headache [Not Recovered/Not Resolved]
  - COVID-19 [Recovered/Resolved]
  - Nasal congestion [Recovered/Resolved]
  - Condition aggravated [Not Recovered/Not Resolved]
  - Off label use [Unknown]
  - Intentional product use issue [Unknown]
  - Off label use [Unknown]
  - Off label use [Unknown]
  - Inappropriate schedule of product administration [Unknown]

NARRATIVE: CASE EVENT DATE: 20200101
